FAERS Safety Report 13602172 (Version 1)
Quarter: 2017Q2

REPORT INFORMATION
  Report Type: Report from Study
  Country: CA (occurrence: CA)
  Receive Date: 20170601
  Receipt Date: 20170601
  Transmission Date: 20170830
  Serious: Yes (Hospitalization, Disabling)
  Sender: FDA-Public Use
  Company Number: CA-AMGEN-CANSL2017082005

PATIENT
  Age: 81 Year
  Sex: Male
  Weight: 84 kg

DRUGS (2)
  1. KYPROLIS [Suspect]
     Active Substance: CARFILZOMIB
     Indication: PRODUCT USED FOR UNKNOWN INDICATION
     Dosage: UNK
     Route: 065
  2. KYPROLIS [Suspect]
     Active Substance: CARFILZOMIB
     Dosage: 112 MG, 01, 02, 08, 09, 15, AND 16 / CYCLE
     Route: 042
     Dates: start: 20170524

REACTIONS (4)
  - Dysuria [Unknown]
  - Hypoglycaemia [Unknown]
  - Dyschezia [Unknown]
  - Haemoglobin decreased [Not Recovered/Not Resolved]
